FAERS Safety Report 17039692 (Version 2)
Quarter: 2019Q4

REPORT INFORMATION
  Report Type: Report from Study
  Country: CN (occurrence: CN)
  Receive Date: 20191116
  Receipt Date: 20191201
  Transmission Date: 20200122
  Serious: Yes (Hospitalization)
  Sender: FDA-Public Use
  Company Number: CN-ROCHE-2459567

PATIENT
  Age: 63 Year
  Sex: Male
  Weight: 64.3 kg

DRUGS (7)
  1. DIOVAN [Concomitant]
     Active Substance: VALSARTAN
  2. TAREG [Concomitant]
     Active Substance: VALSARTAN
  3. CEFTRIAXONE. [Concomitant]
     Active Substance: CEFTRIAXONE
  4. ATEZOLIZUMAB. [Suspect]
     Active Substance: ATEZOLIZUMAB
     Indication: HEPATOCELLULAR CARCINOMA
     Dosage: DATE OF MOST RECENT DOSE OF ATEZOLIZUMAB: 04/OCT/2019
     Route: 042
     Dates: start: 20191004
  5. CABOZANTINIB [Suspect]
     Active Substance: CABOZANTINIB
     Indication: HEPATOCELLULAR CARCINOMA
     Dosage: DATE OF MOST RECENT DOSE OF CABOZANTINIB: 20/OCT/2019
     Route: 048
     Dates: start: 20191004
  6. BENZBROMARONE [Concomitant]
     Active Substance: BENZBROMARONE
  7. NORVASC [Concomitant]
     Active Substance: AMLODIPINE BESYLATE

REACTIONS (2)
  - Pyrexia [Recovered/Resolved]
  - Disseminated intravascular coagulation [Recovered/Resolved]

NARRATIVE: CASE EVENT DATE: 20191016
